FAERS Safety Report 22587033 (Version 1)
Quarter: 2023Q2

REPORT INFORMATION
  Report Type: Spontaneous
  Country: GB (occurrence: GB)
  Receive Date: 20230612
  Receipt Date: 20230612
  Transmission Date: 20230722
  Serious: Yes (Other)
  Sender: FDA-Public Use
  Company Number: GB-SAMSUNG BIOEPIS-SB-2023-14893

PATIENT
  Age: 47 Year
  Sex: Male

DRUGS (8)
  1. INFLIXIMAB [Suspect]
     Active Substance: INFLIXIMAB
     Indication: Arthritis
     Dosage: UNKNOWN
     Route: 065
     Dates: start: 202201
  2. ADALIMUMAB [Suspect]
     Active Substance: ADALIMUMAB
     Indication: Arthritis
     Dosage: UNKNOWN. THERAPY START DATE: 2017
     Route: 065
  3. METHOTREXATE [Concomitant]
     Active Substance: METHOTREXATE
     Indication: Arthritis
     Route: 058
     Dates: start: 2015
  4. METHOTREXATE [Concomitant]
     Active Substance: METHOTREXATE
     Route: 058
     Dates: start: 202201
  5. PREDNISOLONE [Concomitant]
     Active Substance: PREDNISOLONE
     Indication: Sarcoidosis
     Route: 065
     Dates: start: 2006
  6. PREDNISOLONE [Concomitant]
     Active Substance: PREDNISOLONE
     Indication: Arthritis
     Dosage: WEANED OFF;
     Route: 065
  7. PREDNISOLONE [Concomitant]
     Active Substance: PREDNISOLONE
     Route: 065
  8. PREDNISOLONE [Concomitant]
     Active Substance: PREDNISOLONE
     Route: 065

REACTIONS (3)
  - Neurosarcoidosis [Recovering/Resolving]
  - Arthritis [Recovered/Resolved]
  - Off label use [Unknown]

NARRATIVE: CASE EVENT DATE: 20200501
